FAERS Safety Report 7240801-8 (Version None)
Quarter: 2011Q1

REPORT INFORMATION
  Report Type: 
  Country: None (occurrence: None)
  Receive Date: 20110120
  Receipt Date: 20110120
  Transmission Date: 20110831
  Serious: Yes (Life-Threatening, Hospitalization, Disabling)
  Sender: FDA-Public Use
  Company Number: None

PATIENT
  Sex: Male
  Weight: 92.9874 kg

DRUGS (1)
  1. COUMADIN [Suspect]
     Indication: CARDIOMYOPATHY
     Dosage: 5MG DAILY DAILY
     Dates: start: 19960101

REACTIONS (4)
  - ASTHENIA [None]
  - HEADACHE [None]
  - ABDOMINAL PAIN UPPER [None]
  - DIZZINESS [None]
